FAERS Safety Report 9260540 (Version 2)
Quarter: 2013Q2

REPORT INFORMATION
  Report Type: Spontaneous
  Country: GB (occurrence: GB)
  Receive Date: 20130429
  Receipt Date: 20130507
  Transmission Date: 20140414
  Serious: Yes (Hospitalization)
  Sender: FDA-Public Use
  Company Number: GB-VERTEX PHARMACEUTICALS INC-2013-005446

PATIENT
  Age: 35 Year
  Sex: Female

DRUGS (9)
  1. KALYDECO [Suspect]
     Indication: CYSTIC FIBROSIS
     Dosage: 300 MG, QD
     Route: 048
     Dates: start: 20130214
  2. AZITHROMYCIN [Concomitant]
     Dosage: 250 MG, QD
     Dates: start: 200901
  3. SERETIDE [Concomitant]
  4. BRICANYL [Concomitant]
  5. VITAMINS [Concomitant]
  6. HUMULIN S [Concomitant]
     Indication: DIABETES MELLITUS
  7. INSULATARD [Concomitant]
     Indication: DIABETES MELLITUS
  8. CREON [Concomitant]
  9. CALCICHEW [Concomitant]

REACTIONS (2)
  - Pseudomonas infection [Recovered/Resolved]
  - Infective pulmonary exacerbation of cystic fibrosis [Recovered/Resolved]
